FAERS Safety Report 22122934 (Version 4)
Quarter: 2023Q2

REPORT INFORMATION
  Report Type: Report from Study
  Country: US (occurrence: US)
  Receive Date: 20230322
  Receipt Date: 20230502
  Transmission Date: 20230722
  Serious: Yes (Death, Hospitalization)
  Sender: FDA-Public Use
  Company Number: US-BIOGEN-2023BI01194462

PATIENT
  Age: 73 Year
  Sex: Female

DRUGS (1)
  1. TYSABRI [Suspect]
     Active Substance: NATALIZUMAB
     Indication: Multiple sclerosis
     Route: 050
     Dates: start: 20200115, end: 20230227

REACTIONS (2)
  - Haemorrhagic stroke [Fatal]
  - Subdural haemorrhage [Fatal]

NARRATIVE: CASE EVENT DATE: 20230315
